FAERS Safety Report 7486797-5 (Version None)
Quarter: 2011Q2

REPORT INFORMATION
  Report Type: 
  Country: None (occurrence: None)
  Receive Date: 20110517
  Receipt Date: 20110506
  Transmission Date: 20111010
  Serious: Yes (Hospitalization)
  Sender: FDA-Public Use
  Company Number: US-PFIZER INC-US-WYE-H15957910

PATIENT
  Sex: Female
  Weight: 77.2 kg

DRUGS (7)
  1. ESTROGENS CONJUGATED AND MEDROXYPROGESTERONE ACETATE [Suspect]
     Indication: PREVENTION OF ENDOMETRIAL HYPERPLASIA
     Dosage: 0.45 MG/ 1.5MG 1X/DAY
     Route: 048
     Dates: start: 20090707
  2. CALCIUM WITH VITAMIN D [Concomitant]
     Dosage: UNK
     Route: 065
     Dates: start: 20090101
  3. LOVAZA [Concomitant]
     Dosage: UNK
     Route: 065
     Dates: start: 20100529
  4. PRILOSEC [Concomitant]
     Dosage: UNK
     Route: 065
     Dates: start: 19950101
  5. ESTROGENS CONJUGATED AND BAZEDOXIFENE [Suspect]
     Indication: OSTEOPOROSIS PROPHYLAXIS
  6. NEXIUM [Concomitant]
     Dosage: UNK
     Route: 065
     Dates: start: 20100505
  7. ATENOLOL [Concomitant]
     Dosage: UNK
     Route: 065
     Dates: start: 19900101

REACTIONS (1)
  - CHOLECYSTITIS [None]
